FAERS Safety Report 4905079-6 (Version None)
Quarter: 2006Q1

REPORT INFORMATION
  Report Type: 
  Country: None (occurrence: None)
  Receive Date: 20060208
  Receipt Date: 20051111
  Transmission Date: 20060701
  Serious: No
  Sender: FDA-Public Use
  Company Number: 1595

PATIENT
  Age: 75 Year
  Sex: Female
  Weight: 50 kg

DRUGS (7)
  1. PAROXETINE HCL [Suspect]
     Indication: DEPRESSION
     Dosage: 20MG PER DAY
     Route: 048
     Dates: start: 20051019
  2. NORVASC [Concomitant]
     Dosage: 10MG PER DAY
     Route: 048
  3. NEXIUM [Concomitant]
     Dosage: 40MG PER DAY
     Route: 048
  4. ASPIRIN [Concomitant]
     Dosage: 81MG PER DAY
     Route: 048
  5. FOLGARD [Concomitant]
     Dosage: 1TAB PER DAY
     Route: 048
  6. MAGNESIUM [Concomitant]
  7. LUTEIN [Concomitant]

REACTIONS (2)
  - PHARMACEUTICAL PRODUCT COMPLAINT [None]
  - WEIGHT DECREASED [None]
